FAERS Safety Report 15501133 (Version 1)
Quarter: 2018Q4

REPORT INFORMATION
  Report Type: Report from Study
  Country: NL (occurrence: NL)
  Receive Date: 20181015
  Receipt Date: 20181015
  Transmission Date: 20190205
  Serious: Yes (Death, Life-Threatening, Other)
  Sender: FDA-Public Use
  Company Number: NL-SHIRE-NL201838470

PATIENT

DRUGS (8)
  1. BLINATUMOMAB [Suspect]
     Active Substance: BLINATUMOMAB
     Indication: ACUTE LYMPHOCYTIC LEUKAEMIA
     Dosage: 0.028 MG, 1X/DAY:QD
     Route: 065
     Dates: start: 20180605, end: 20180619
  2. OMEPRAZOLE. [Concomitant]
     Active Substance: OMEPRAZOLE
     Indication: PRODUCT USED FOR UNKNOWN INDICATION
  3. METHOTREXATE. [Suspect]
     Active Substance: METHOTREXATE
     Indication: ACUTE LYMPHOCYTIC LEUKAEMIA
     Dosage: 12.5 UNK, 1X/DAY:QD
     Route: 037
     Dates: start: 20180629, end: 20180706
  4. DAUNORUBICIN [Suspect]
     Active Substance: DAUNORUBICIN
     Indication: ACUTE LYMPHOCYTIC LEUKAEMIA
     Dosage: 55 UNK, 1X/DAY:QD
     Route: 065
     Dates: start: 20180628, end: 20180705
  5. PEGASPARGASE [Suspect]
     Active Substance: PEGASPARGASE
     Indication: ACUTE LYMPHOCYTIC LEUKAEMIA
     Dosage: 1350 UNK, 1X/DAY:QD
     Route: 065
     Dates: start: 20180628, end: 20180628
  6. DEXAMETHASONE. [Suspect]
     Active Substance: DEXAMETHASONE
     Indication: ACUTE LYMPHOCYTIC LEUKAEMIA
     Dosage: 4 UNK, 1X/DAY:QD
     Route: 037
     Dates: start: 20180629, end: 20180706
  7. PREDNISOLONE. [Suspect]
     Active Substance: PREDNISOLONE
     Indication: ACUTE LYMPHOCYTIC LEUKAEMIA
     Dosage: 70 MG, 1X/DAY:QD
     Route: 048
     Dates: start: 20180605, end: 20180714
  8. VINCRISTINE [Suspect]
     Active Substance: VINCRISTINE
     Indication: ACUTE LYMPHOCYTIC LEUKAEMIA
     Dosage: 1.8 MG, 1X/DAY:QD
     Route: 065
     Dates: start: 20180621, end: 20180712

REACTIONS (2)
  - Infection [Fatal]
  - Hepatic failure [Fatal]

NARRATIVE: CASE EVENT DATE: 20180713
